FAERS Safety Report 5753040-4 (Version None)
Quarter: 2008Q2

REPORT INFORMATION
  Report Type: 
  Country: None (occurrence: None)
  Receive Date: 20080527
  Receipt Date: 20080512
  Transmission Date: 20081010
  Serious: Yes (Other)
  Sender: FDA-Public Use
  Company Number: 100#08#2008-02745

PATIENT
  Age: 74 Year
  Sex: Female

DRUGS (3)
  1. CARBOPLATIN [Suspect]
     Indication: NEOPLASM MALIGNANT
     Dosage: 300 MG INTRA-ARTERIAL
     Route: 013
     Dates: start: 20030324
  2. CISPLATIN [Concomitant]
  3. FLUOROURACIL [Concomitant]

REACTIONS (3)
  - JAW FRACTURE [None]
  - MUSCLE NECROSIS [None]
  - OSTEONECROSIS [None]
